FAERS Safety Report 5498095-X (Version None)
Quarter: 2007Q4

REPORT INFORMATION
  Report Type: 
  Country: None (occurrence: None)
  Receive Date: 20071025
  Receipt Date: 20071004
  Transmission Date: 20080405
  Serious: Yes (Other)
  Sender: FDA-Public Use
  Company Number: US-SANOFI-SYNTHELABO-A03200705412

PATIENT
  Sex: Male
  Weight: 87.5 kg

DRUGS (7)
  1. PLAVIX [Suspect]
     Indication: PERIPHERAL ARTERIAL OCCLUSIVE DISEASE
     Route: 048
     Dates: start: 20060401
  2. FOLEX [Concomitant]
     Dosage: UNK
     Route: 048
     Dates: start: 20060601
  3. ZETIA [Concomitant]
     Route: 048
     Dates: start: 20060501
  4. CRESTOR [Concomitant]
     Route: 048
     Dates: start: 20060501
  5. METOPROLOL TARTRATE [Concomitant]
     Route: 048
     Dates: start: 20060401
  6. LISINOPRIL AND HYDROCHLOROTHIAZIDE [Concomitant]
     Dosage: 20/25 MG QD
     Route: 048
     Dates: start: 20060401
  7. ASPIRIN [Concomitant]
     Route: 048
     Dates: start: 20060401

REACTIONS (7)
  - AMNESIA [None]
  - CONFUSIONAL STATE [None]
  - DIZZINESS [None]
  - FATIGUE [None]
  - GAIT DISTURBANCE [None]
  - LOSS OF CONSCIOUSNESS [None]
  - SYNCOPE [None]
